FAERS Safety Report 9283531 (Version 1)
Quarter: 2013Q2

REPORT INFORMATION
  Report Type: Spontaneous
  Country: US (occurrence: US)
  Receive Date: 20130510
  Receipt Date: 20130510
  Transmission Date: 20140414
  Serious: No
  Sender: FDA-Public Use
  Company Number: US-GLAXOSMITHKLINE-A1014614A

PATIENT
  Age: 54 Year
  Sex: Female

DRUGS (6)
  1. TYKERB [Suspect]
     Indication: BREAST CANCER
     Dosage: 1000MG PER DAY
     Route: 048
     Dates: start: 20130217
  2. XELODA [Suspect]
     Dosage: 3TAB TWICE PER DAY
     Route: 048
     Dates: start: 2010
  3. XELODA [Concomitant]
  4. XGEVA [Concomitant]
  5. SYNTHROID [Concomitant]
  6. VITAMIN D [Concomitant]

REACTIONS (9)
  - Dermatitis acneiform [Not Recovered/Not Resolved]
  - Erythema [Unknown]
  - Muscle spasms [Unknown]
  - Fatigue [Unknown]
  - Dry skin [Unknown]
  - Pruritus [Unknown]
  - Nail disorder [Unknown]
  - Diarrhoea [Unknown]
  - Diarrhoea [Unknown]
